FAERS Safety Report 8166719-4 (Version None)
Quarter: 2012Q1

REPORT INFORMATION
  Report Type: 
  Country: None (occurrence: None)
  Receive Date: 20120227
  Receipt Date: 20120216
  Transmission Date: 20120608
  Serious: Yes (Hospitalization, Other)
  Sender: FDA-Public Use
  Company Number: JP-CELGENEUS-087-CCAZA-11070733

PATIENT
  Sex: Male
  Weight: 47 kg

DRUGS (11)
  1. VIDAZA [Suspect]
     Dosage: 75 MILLIGRAM/SQ. METER
     Route: 058
     Dates: start: 20110613, end: 20110617
  2. VIDAZA [Suspect]
     Dosage: 75 MILLIGRAM/SQ. METER
     Route: 058
     Dates: start: 20110425, end: 20110429
  3. VIDAZA [Suspect]
     Dosage: 50 MILLIGRAM/SQ. METER
     Route: 058
     Dates: start: 20110619, end: 20110622
  4. ARMODAFINIL [Concomitant]
     Route: 065
     Dates: start: 20110328
  5. ALENDRONATE SODIUM [Concomitant]
     Route: 065
     Dates: start: 20110328
  6. RABEPRAZOLE SODIUM [Concomitant]
     Route: 065
     Dates: start: 20110328
  7. VIDAZA [Suspect]
     Indication: MYELODYSPLASTIC SYNDROME
     Dosage: 75 MILLIGRAM/SQ. METER
     Route: 058
     Dates: start: 20110328, end: 20110401
  8. VIDAZA [Suspect]
     Dosage: 50 MILLIGRAM/SQ. METER
     Route: 058
     Dates: start: 20110829, end: 20110902
  9. PREDNISOLONE [Concomitant]
     Route: 065
     Dates: start: 20110328
  10. ADONA [Concomitant]
     Route: 065
     Dates: start: 20110328
  11. TRANSAMIN [Concomitant]
     Route: 065
     Dates: start: 20110328

REACTIONS (5)
  - NEUTROPHIL COUNT DECREASED [None]
  - PLATELET COUNT DECREASED [None]
  - BLAST CELL COUNT INCREASED [None]
  - WHITE BLOOD CELL COUNT DECREASED [None]
  - WHITE BLOOD CELL COUNT INCREASED [None]
